FAERS Safety Report 18516286 (Version 1)
Quarter: 2020Q4

REPORT INFORMATION
  Report Type: Spontaneous
  Country: US (occurrence: US)
  Receive Date: 20201118
  Receipt Date: 20201118
  Transmission Date: 20210114
  Serious: No
  Sender: FDA-Public Use
  Company Number: US-ALVOGEN-2020-ALVOGEN-115197

PATIENT
  Age: 58 Year
  Sex: Male

DRUGS (1)
  1. BUPRENORPHINE/NALOXONE [Suspect]
     Active Substance: BUPRENORPHINE\NALOXONE
     Indication: DRUG DEPENDENCE
     Dates: start: 20200817

REACTIONS (6)
  - Sneezing [Recovered/Resolved]
  - Euphoric mood [Unknown]
  - Headache [Recovered/Resolved]
  - Anxiety [Recovered/Resolved]
  - Diarrhoea [Recovered/Resolved]
  - Overdose [Unknown]

NARRATIVE: CASE EVENT DATE: 202008
